FAERS Safety Report 23786933 (Version 1)
Quarter: 2024Q2

REPORT INFORMATION
  Report Type: Spontaneous
  Country: US (occurrence: US)
  Receive Date: 20240426
  Receipt Date: 20240426
  Transmission Date: 20240716
  Serious: Yes (Other)
  Sender: FDA-Public Use
  Company Number: US-MLMSERVICE-20160107-0128506-1

PATIENT
  Age: 60 Year
  Sex: Female

DRUGS (3)
  1. CYCLOPHOSPHAMIDE [Suspect]
     Active Substance: CYCLOPHOSPHAMIDE
     Indication: Chemotherapy
     Dosage: 600 MILLIGRAM/SQ. METER, CYCLICAL
     Route: 065
     Dates: start: 20120607
  2. DOCETAXEL [Suspect]
     Active Substance: DOCETAXEL\DOCETAXEL ANHYDROUS
     Indication: Chemotherapy
     Dosage: 75 MILLIGRAM/SQ. METER, CYCLICAL
     Route: 065
     Dates: start: 20120607
  3. SULFAMETHOXAZOLE\TRIMETHOPRIM [Concomitant]
     Active Substance: SULFAMETHOXAZOLE\TRIMETHOPRIM
     Indication: Erythema
     Dosage: UNK
     Route: 065

REACTIONS (2)
  - Radiation skin injury [Recovered/Resolved]
  - Skin ulcer [Recovered/Resolved]
